FAERS Safety Report 13287022 (Version 3)
Quarter: 2017Q1

REPORT INFORMATION
  Report Type: Spontaneous
  Country: DE (occurrence: DE)
  Receive Date: 20170302
  Receipt Date: 20170330
  Transmission Date: 20170428
  Serious: Yes (Other)
  Sender: FDA-Public Use
  Company Number: DE-B.I. PHARMACEUTICALS,INC./RIDGEFIELD-2017-BI-010586

PATIENT
  Age: 77 Year
  Sex: Male
  Weight: 86 kg

DRUGS (3)
  1. OFEV [Suspect]
     Active Substance: NINTEDANIB
     Indication: PULMONARY FIBROSIS
     Route: 065
     Dates: start: 20170203
  2. ASPIRIN. [Concomitant]
     Active Substance: ASPIRIN
     Indication: PRODUCT USED FOR UNKNOWN INDICATION
     Route: 065
  3. LOPERAMIDE [Suspect]
     Active Substance: LOPERAMIDE
     Indication: DIARRHOEA
     Route: 048

REACTIONS (7)
  - Abdominal pain upper [Unknown]
  - Epistaxis [Recovered/Resolved]
  - Weight decreased [Unknown]
  - Pain of skin [Unknown]
  - Ageusia [Unknown]
  - Decreased appetite [Unknown]
  - Oedema [Unknown]
